FAERS Safety Report 7907713-5 (Version None)
Quarter: 2011Q4

REPORT INFORMATION
  Report Type: 
  Country: None (occurrence: None)
  Receive Date: 20111110
  Receipt Date: 20111027
  Transmission Date: 20120403
  Serious: Yes (Hospitalization)
  Sender: FDA-Public Use
  Company Number: DE-ELI_LILLY_AND_COMPANY-DE201109000928

PATIENT
  Age: 72 Year
  Sex: Female

DRUGS (9)
  1. TORSEMIDE [Concomitant]
     Dosage: 10 DF, QD
  2. IBUPROFEN [Concomitant]
     Dosage: 600 DF, QD
  3. NOVO RAPID [Concomitant]
  4. FENTANYL [Interacting]
     Dosage: 25 UG, UNK
  5. CYMBALTA [Suspect]
     Indication: PAIN
     Dosage: 30 MG, UNK
     Dates: start: 20110822, end: 20110825
  6. RAMIPRIL [Concomitant]
     Dosage: 5 DF, UNK
  7. MARCUMAR [Concomitant]
  8. BISOPROLOL [Concomitant]
     Dosage: UNK, QD
  9. PANTOPRAZOLE [Concomitant]
     Dosage: 20 DF, QD

REACTIONS (7)
  - ASTHENIA [None]
  - EATING DISORDER [None]
  - MEMORY IMPAIRMENT [None]
  - DRUG INTERACTION [None]
  - SOMNOLENCE [None]
  - DISORIENTATION [None]
  - NEUROLOGICAL EXAMINATION ABNORMAL [None]
